FAERS Safety Report 14699258 (Version 3)
Quarter: 2019Q4

REPORT INFORMATION
  Report Type: Report from Study
  Country: GB (occurrence: GB)
  Receive Date: 20180330
  Receipt Date: 20191112
  Transmission Date: 20200122
  Serious: Yes (Other)
  Sender: FDA-Public Use
  Company Number: GB-BRISTOL-MYERS SQUIBB COMPANY-BMS-2018-026197

PATIENT
  Age: 70 Year
  Sex: Female

DRUGS (1)
  1. ABATACEPT [Suspect]
     Active Substance: ABATACEPT
     Indication: RHEUMATOID ARTHRITIS
     Dosage: 125 MILLIGRAM, QWK
     Route: 058
     Dates: start: 20180110

REACTIONS (12)
  - Vomiting [Unknown]
  - Kidney infection [Not Recovered/Not Resolved]
  - Cystitis [Unknown]
  - Malaise [Unknown]
  - Urinary tract infection [Unknown]
  - Headache [Unknown]
  - Infection [Unknown]
  - Off label use [Unknown]
  - Gastroenteritis norovirus [Unknown]
  - Pain in extremity [Unknown]
  - Skin disorder [Recovering/Resolving]
  - Peripheral swelling [Unknown]

NARRATIVE: CASE EVENT DATE: 20190331
